FAERS Safety Report 6964960-7 (Version None)
Quarter: 2010Q3

REPORT INFORMATION
  Report Type: 
  Country: None (occurrence: None)
  Receive Date: 20100903
  Receipt Date: 20100826
  Transmission Date: 20110219
  Serious: Yes (Hospitalization)
  Sender: FDA-Public Use
  Company Number: US-SANOFI-AVENTIS-2010SA051535

PATIENT
  Age: 65 Year
  Sex: Male

DRUGS (3)
  1. LANTUS [Suspect]
     Indication: DIABETES MELLITUS
     Dosage: 30-50 UNITS
     Route: 058
  2. SOLOSTAR [Suspect]
     Indication: DIABETES MELLITUS
  3. HUMALOG [Concomitant]

REACTIONS (1)
  - DIABETIC HYPERGLYCAEMIC COMA [None]
